FAERS Safety Report 11802003 (Version 1)
Quarter: 2015Q4

REPORT INFORMATION
  Report Type: Spontaneous
  Country: US (occurrence: US)
  Receive Date: 20151204
  Receipt Date: 20151204
  Transmission Date: 20160305
  Serious: Yes (Other)
  Sender: FDA-Public Use
  Company Number: US-MYLANLABS-2015M1042626

PATIENT

DRUGS (14)
  1. MIDAZOLAM [Suspect]
     Active Substance: MIDAZOLAM\MIDAZOLAM HYDROCHLORIDE
     Indication: PSYCHOGENIC SEIZURE
     Route: 064
  2. ZIPRASIDONE. [Concomitant]
     Active Substance: ZIPRASIDONE
     Indication: PSYCHOGENIC SEIZURE
     Route: 064
  3. PROPOFOL. [Suspect]
     Active Substance: PROPOFOL
     Indication: SEDATION
     Route: 064
  4. RITUXIMAB [Concomitant]
     Active Substance: RITUXIMAB
     Route: 064
  5. MEDROXYPROGESTERONE [Concomitant]
     Active Substance: MEDROXYPROGESTERONE
     Dosage: 5MG
     Route: 064
  6. CLOBAZAM [Suspect]
     Active Substance: CLOBAZAM
     Indication: PSYCHOGENIC SEIZURE
     Route: 064
  7. PHENYTOIN. [Suspect]
     Active Substance: PHENYTOIN
     Indication: PSYCHOGENIC SEIZURE
     Route: 064
  8. METHYLPREDNISOLONE. [Concomitant]
     Active Substance: METHYLPREDNISOLONE
     Dosage: 1G DAILY
     Route: 064
  9. LEVETIRACETAM. [Suspect]
     Active Substance: LEVETIRACETAM
     Indication: PSYCHOGENIC SEIZURE
     Route: 064
  10. TOPIRAMATE. [Suspect]
     Active Substance: TOPIRAMATE
     Indication: PSYCHOGENIC SEIZURE
     Route: 064
  11. CONJUGATED ESTROGENS [Concomitant]
     Active Substance: ESTROGENS, CONJUGATED
     Dosage: 0.625MG
     Route: 064
  12. METAMFETAMINE [Concomitant]
     Active Substance: METHAMPHETAMINE
     Route: 064
  13. IMMUNE GLOBULIN [Concomitant]
     Active Substance: HUMAN IMMUNOGLOBULIN G
     Route: 064
  14. BROMOCRIPTINE [Concomitant]
     Active Substance: BROMOCRIPTINE
     Route: 064

REACTIONS (4)
  - Foetal exposure during pregnancy [Recovered/Resolved]
  - Muscular weakness [Recovered/Resolved]
  - Drug withdrawal syndrome [Recovered/Resolved]
  - Respiratory depression [Recovered/Resolved]
